FAERS Safety Report 13797331 (Version 1)
Quarter: 2017Q3

REPORT INFORMATION
  Report Type: Report from Study
  Country: JP (occurrence: JP)
  Receive Date: 20170727
  Receipt Date: 20170727
  Transmission Date: 20171127
  Serious: Yes (Other)
  Sender: FDA-Public Use
  Company Number: JP-VIFOR (INTERNATIONAL) INC.-VIT-2017-07952

PATIENT
  Age: 81 Year
  Sex: Male
  Weight: 49.4 kg

DRUGS (11)
  1. VELPHORO [Suspect]
     Active Substance: FERRIC OXYHYDROXIDE
     Indication: HYPERPHOSPHATAEMIA
     Route: 048
     Dates: start: 20161125
  2. NESP [Concomitant]
     Active Substance: DARBEPOETIN ALFA
     Dates: end: 20161205
  3. FESIN [Concomitant]
     Active Substance: IRON SUCROSE
     Dates: start: 20161114, end: 20161125
  4. NESP [Concomitant]
     Active Substance: DARBEPOETIN ALFA
     Dates: start: 20170130, end: 20170206
  5. KAYEXALATE [Concomitant]
     Active Substance: SODIUM POLYSTYRENE SULFONATE
     Route: 048
  6. NESP [Concomitant]
     Active Substance: DARBEPOETIN ALFA
     Dates: start: 20170213, end: 20170220
  7. CALTAN [Concomitant]
     Active Substance: CALCIUM CARBONATE
     Route: 048
  8. EXFORGE [Concomitant]
     Active Substance: AMLODIPINE BESYLATE\VALSARTAN
     Route: 048
  9. CARDENARIN [Concomitant]
     Route: 048
     Dates: start: 20161205, end: 20161225
  10. NESP [Concomitant]
     Active Substance: DARBEPOETIN ALFA
     Dates: start: 20161212, end: 20161219
  11. CARDENARIN [Concomitant]
     Route: 048
     Dates: start: 20161226

REACTIONS (7)
  - Rhinitis allergic [Recovered/Resolved]
  - Rhinorrhoea [Recovered/Resolved]
  - Diarrhoea [Recovering/Resolving]
  - Frequent bowel movements [Recovered/Resolved]
  - Prostate cancer [Unknown]
  - Haematuria [Unknown]
  - Nasal congestion [Recovered/Resolved]

NARRATIVE: CASE EVENT DATE: 20161126
